FAERS Safety Report 7764438-7 (Version None)
Quarter: 2011Q3

REPORT INFORMATION
  Report Type: 
  Country: None (occurrence: None)
  Receive Date: 20110919
  Receipt Date: 20110915
  Transmission Date: 20111222
  Serious: Yes (Other)
  Sender: FDA-Public Use
  Company Number: CO-001983

PATIENT
  Age: 13 Year
  Sex: Female
  Weight: 25 kg

DRUGS (4)
  1. NAGLYZYME (NAGLAZYME) [Suspect]
     Indication: MUCOPOLYSACCHARIDOSIS VI
     Dosage: (25 MG 1X/WEEK INTRAVENOUS DRIP)
     Route: 041
     Dates: start: 20080116
  2. DESLORATADINE [Concomitant]
  3. MOMETASONE FUROATE [Concomitant]
  4. OMEPRAZOLE [Concomitant]

REACTIONS (4)
  - SPINAL CORD COMPRESSION [None]
  - DISEASE PROGRESSION [None]
  - MUCOPOLYSACCHARIDOSIS VI [None]
  - GAIT DISTURBANCE [None]
